FAERS Safety Report 4977350-3 (Version None)
Quarter: 2006Q2

REPORT INFORMATION
  Report Type: 
  Country: None (occurrence: None)
  Receive Date: 20060419
  Receipt Date: 20051130
  Transmission Date: 20061013
  Serious: Yes (Hospitalization, Disabling)
  Sender: FDA-Public Use
  Company Number: US-MERCK-0512USA00052

PATIENT
  Age: 70 Year
  Sex: Female
  Weight: 64 kg

DRUGS (5)
  1. VIOXX [Suspect]
     Indication: ARTHRITIS
     Route: 048
     Dates: start: 20010101, end: 20020901
  2. PREVACID [Concomitant]
     Route: 065
  3. VERAPAMIL [Concomitant]
     Route: 065
  4. ESTRADIOL [Concomitant]
     Route: 065
  5. ZOCOR [Concomitant]
     Route: 065

REACTIONS (3)
  - ARRHYTHMIA [None]
  - MYOCARDIAL INFARCTION [None]
  - SPINAL FUSION SURGERY [None]
